FAERS Safety Report 5395482-5 (Version None)
Quarter: 2007Q3

REPORT INFORMATION
  Report Type: 
  Country: None (occurrence: None)
  Receive Date: 20070724
  Receipt Date: 20070713
  Transmission Date: 20080115
  Serious: Yes (Hospitalization)
  Sender: FDA-Public Use
  Company Number: US-ROCHE-420153

PATIENT
  Age: 50 Year
  Sex: Male
  Weight: 68 kg

DRUGS (9)
  1. PEG-INTERFERON A-2A (RO 25-8310) [Suspect]
     Route: 058
     Dates: start: 20041223
  2. RIBAVIRIN [Suspect]
     Route: 048
     Dates: start: 20041223
  3. TOPROL-XL [Concomitant]
     Indication: HYPERTENSION
     Dates: start: 20030101
  4. ASPIRIN [Concomitant]
     Dates: start: 20030101
  5. NITROGLYCERIN [Concomitant]
     Indication: ANGINA PECTORIS
     Dosage: DOSE REPORTED AS 1 S/L.
     Dates: start: 20030101
  6. IMDUR [Concomitant]
     Indication: ANGINA PECTORIS
     Dates: start: 20030101
  7. MULTIVITAMIN NOS [Concomitant]
     Dates: start: 20040101
  8. PROCRIT [Concomitant]
     Dates: start: 20050301
  9. ACETAMINOPHEN [Concomitant]
     Indication: HEADACHE
     Dates: start: 20050102

REACTIONS (2)
  - CHEST DISCOMFORT [None]
  - GASTROOESOPHAGEAL REFLUX DISEASE [None]
